FAERS Safety Report 7214900-0 (Version None)
Quarter: 2011Q1

REPORT INFORMATION
  Report Type: 
  Country: None (occurrence: None)
  Receive Date: 20110107
  Receipt Date: 20100429
  Transmission Date: 20110831
  Serious: No
  Sender: FDA-Public Use
  Company Number: A0857291A

PATIENT
  Sex: Female

DRUGS (5)
  1. LOVAZA [Suspect]
     Dosage: 2CAP PER DAY
     Route: 048
     Dates: start: 20100424
  2. ETODOLAC [Concomitant]
  3. LIPITOR [Concomitant]
  4. XANAX [Concomitant]
  5. WINE [Concomitant]

REACTIONS (1)
  - RASH [None]
